FAERS Safety Report 24449041 (Version 1)
Quarter: 2024Q4

REPORT INFORMATION
  Report Type: Report from Study
  Country: US (occurrence: US)
  Receive Date: 20241017
  Receipt Date: 20241017
  Transmission Date: 20250114
  Serious: Yes (Hospitalization, Other)
  Sender: GILEAD
  Company Number: US-GILEAD-2024-0691136

PATIENT
  Sex: Female

DRUGS (28)
  1. AZTREONAM LYSINE [Suspect]
     Active Substance: AZTREONAM LYSINE
     Indication: Illness
     Dosage: INHALE 75 MG VIA ALTERA NEBULIZER EVERY 12 HOURS, 2 WEEKS ON AND 2 WEEKS OFF
     Route: 055
     Dates: start: 202308
  2. VITAMINS NOS [Concomitant]
     Active Substance: VITAMINS
  3. ENALAPRIL [Concomitant]
     Active Substance: ENALAPRIL
  4. OXYGEN [Concomitant]
     Active Substance: OXYGEN
  5. CREON [Concomitant]
     Active Substance: PANCRELIPASE AMYLASE\PANCRELIPASE LIPASE\PANCRELIPASE PROTEASE
  6. LEVALBUTEROL [Concomitant]
     Active Substance: LEVALBUTEROL
  7. CLONAZEPAM [Concomitant]
     Active Substance: CLONAZEPAM
  8. MOMETASONE FUROATE [Concomitant]
     Active Substance: MOMETASONE FUROATE
  9. METOPROLOL TARTRATE [Concomitant]
     Active Substance: METOPROLOL TARTRATE
  10. AMOXICILLIN [Concomitant]
     Active Substance: AMOXICILLIN
  11. PULMICORT TURBUHALER [Concomitant]
     Active Substance: BUDESONIDE
  12. VITAMIN D3 [Concomitant]
     Active Substance: CHOLECALCIFEROL
  13. PHENOBARBITAL [Concomitant]
     Active Substance: PHENOBARBITAL
  14. LACOSAMIDE [Concomitant]
     Active Substance: LACOSAMIDE
  15. FENOFIBRATE [Concomitant]
     Active Substance: FENOFIBRATE
  16. SODIUM BICARBONATE [Concomitant]
     Active Substance: SODIUM BICARBONATE
  17. OMEPRAZOLE [Concomitant]
     Active Substance: OMEPRAZOLE
  18. FERROUS SULFATE [Concomitant]
     Active Substance: FERROUS SULFATE
  19. PULMOZYME [Concomitant]
     Active Substance: DORNASE ALFA
  20. HYDROCORTISONE ACETATE [Concomitant]
     Active Substance: HYDROCORTISONE ACETATE
  21. CHILDRENS ALLERGY RELIEF [Concomitant]
     Active Substance: FLUTICASONE PROPIONATE
  22. NYSTATIN [Concomitant]
     Active Substance: NYSTATIN
  23. TACROLIMUS [Concomitant]
     Active Substance: TACROLIMUS
  24. DIAZEPAM [Concomitant]
     Active Substance: DIAZEPAM
  25. LOPERAMIDE [Concomitant]
     Active Substance: LOPERAMIDE
  26. TOPIRAMATE [Concomitant]
     Active Substance: TOPIRAMATE
  27. VALTOCO [Concomitant]
     Active Substance: DIAZEPAM
  28. MAGONATE [MAGNESIUM CARBONATE] [Concomitant]

REACTIONS (2)
  - Pneumonia [Unknown]
  - Off label use [Not Recovered/Not Resolved]
